FAERS Safety Report 25644435 (Version 2)
Quarter: 2025Q4

REPORT INFORMATION
  Report Type: Spontaneous
  Country: CA (occurrence: CA)
  Receive Date: 20250805
  Receipt Date: 20251001
  Transmission Date: 20260117
  Serious: Yes (Hospitalization)
  Sender: PFIZER
  Company Number: CA-PFIZER INC-PV202500092702

PATIENT
  Age: 64 Year
  Sex: Female

DRUGS (1)
  1. NYVEPRIA [Suspect]
     Active Substance: PEGFILGRASTIM-APGF
     Indication: Breast cancer
     Dosage: 6 MG EVERY 3 WEEKS (ON DAY 2 OF CHEMO)
     Dates: start: 20250129, end: 2025

REACTIONS (1)
  - Cholelithiasis [Unknown]
